FAERS Safety Report 24405153 (Version 1)
Quarter: 2024Q4

REPORT INFORMATION
  Report Type: Other
  Country: GB (occurrence: GB)
  Receive Date: 20241007
  Receipt Date: 20241007
  Transmission Date: 20250115
  Serious: Yes (Disabling, Other)
  Sender: MACLEODS
  Company Number: None

PATIENT

DRUGS (5)
  1. ARIPIPRAZOLE [Suspect]
     Active Substance: ARIPIPRAZOLE
     Indication: Mania
     Dosage: CAN^T REMEMBER
     Route: 065
     Dates: start: 20210606, end: 20210712
  2. QUETIAPINE [Suspect]
     Active Substance: QUETIAPINE
     Indication: Product used for unknown indication
     Route: 065
  3. QUETIAPINE [Suspect]
     Active Substance: QUETIAPINE
     Route: 065
  4. QUETIAPINE [Suspect]
     Active Substance: QUETIAPINE
     Route: 065
  5. ZOPICLONE [Concomitant]
     Active Substance: ZOPICLONE
     Indication: Insomnia
     Route: 065
     Dates: end: 20160606

REACTIONS (3)
  - Osteoarthritis [Recovered/Resolved with Sequelae]
  - Palpitations [Unknown]
  - Constipation [Unknown]

NARRATIVE: CASE EVENT DATE: 20210606
